FAERS Safety Report 12993731 (Version 2)
Quarter: 2017Q2

REPORT INFORMATION
  Report Type: Spontaneous
  Country: US (occurrence: US)
  Receive Date: 20161202
  Receipt Date: 20170503
  Transmission Date: 20170830
  Serious: No
  Sender: FDA-Public Use
  Company Number: US-JNJFOC-20161122951

PATIENT
  Sex: Male

DRUGS (14)
  1. ZYPREXA [Suspect]
     Active Substance: OLANZAPINE
     Indication: PRODUCT USED FOR UNKNOWN INDICATION
     Route: 065
  2. RISPERDAL [Suspect]
     Active Substance: RISPERIDONE
     Indication: STRESS
     Route: 048
     Dates: start: 19981222, end: 19990104
  3. RISPERDAL [Suspect]
     Active Substance: RISPERIDONE
     Indication: DELUSION
     Route: 048
     Dates: start: 19981222, end: 19990104
  4. DEPAKOTE [Suspect]
     Active Substance: DIVALPROEX SODIUM
     Indication: PSYCHOTIC DISORDER
     Route: 065
  5. RISPERDAL [Suspect]
     Active Substance: RISPERIDONE
     Indication: ABNORMAL BEHAVIOUR
     Dosage: .25MG, 1 MG, 2 MG, 3 MG
     Route: 048
     Dates: start: 19990105, end: 200501
  6. RISPERDAL [Suspect]
     Active Substance: RISPERIDONE
     Indication: SUICIDE ATTEMPT
     Dosage: .25MG, 1 MG, 2 MG, 3 MG
     Route: 048
     Dates: start: 19990105, end: 200501
  7. RISPERDAL [Suspect]
     Active Substance: RISPERIDONE
     Indication: MAJOR DEPRESSION
     Dosage: .25MG, 1 MG, 2 MG, 3 MG
     Route: 048
     Dates: start: 19990105, end: 200501
  8. RISPERDAL [Suspect]
     Active Substance: RISPERIDONE
     Indication: SCHIZOPHRENIA
     Route: 048
     Dates: start: 19981222, end: 19990104
  9. RISPERDAL [Suspect]
     Active Substance: RISPERIDONE
     Indication: MAJOR DEPRESSION
     Route: 048
     Dates: start: 19981222, end: 19990104
  10. RISPERDAL [Suspect]
     Active Substance: RISPERIDONE
     Indication: ABNORMAL BEHAVIOUR
     Route: 048
     Dates: start: 19981222, end: 19990104
  11. RISPERDAL [Suspect]
     Active Substance: RISPERIDONE
     Indication: SCHIZOPHRENIA
     Dosage: .25MG, 1 MG, 2 MG, 3 MG
     Route: 048
     Dates: start: 19990105, end: 200501
  12. RISPERDAL [Suspect]
     Active Substance: RISPERIDONE
     Indication: STRESS
     Dosage: .25MG, 1 MG, 2 MG, 3 MG
     Route: 048
     Dates: start: 19990105, end: 200501
  13. RISPERDAL [Suspect]
     Active Substance: RISPERIDONE
     Indication: SUICIDE ATTEMPT
     Route: 048
     Dates: start: 19981222, end: 19990104
  14. RISPERDAL [Suspect]
     Active Substance: RISPERIDONE
     Indication: DELUSION
     Dosage: .25MG, 1 MG, 2 MG, 3 MG
     Route: 048
     Dates: start: 19990105, end: 200501

REACTIONS (3)
  - Gynaecomastia [Unknown]
  - Galactorrhoea [Unknown]
  - Abnormal weight gain [Unknown]

NARRATIVE: CASE EVENT DATE: 2002
